FAERS Safety Report 9380137 (Version 1)
Quarter: 2013Q3

REPORT INFORMATION
  Report Type: Spontaneous
  Country: US (occurrence: None)
  Receive Date: 20130701
  Receipt Date: 20130701
  Transmission Date: 20140515
  Serious: Yes (Other)
  Sender: FDA-Public Use
  Company Number: None

PATIENT
  Age: 41 Year
  Sex: Female

DRUGS (2)
  1. RIBAVIRIN [Suspect]
     Indication: HEPATITIS C
     Dosage: 200MG  3 Q AM AND 3Q PM PO
     Route: 048
     Dates: start: 20130619, end: 20130628
  2. PEGASYS [Suspect]
     Dosage: 180MCG ONCE WEEKLY SQ
     Route: 058

REACTIONS (3)
  - Abdominal pain upper [None]
  - Night sweats [None]
  - Vomiting [None]
